FAERS Safety Report 9309408 (Version 2)
Quarter: 2013Q4

REPORT INFORMATION
  Report Type: Spontaneous
  Country: US (occurrence: US)
  Receive Date: 20130525
  Receipt Date: 20131126
  Transmission Date: 20140711
  Serious: No
  Sender: FDA-Public Use
  Company Number: US-BRISTOL-MYERS SQUIBB COMPANY-18707893

PATIENT
  Age: 54 Year
  Sex: Female
  Weight: 99.7 kg

DRUGS (4)
  1. BYDUREON [Suspect]
     Indication: TYPE 2 DIABETES MELLITUS
     Route: 058
     Dates: start: 20130228
  2. LEVEMIR [Concomitant]
  3. NOVOLOG [Concomitant]
  4. GLIMEPIRIDE [Concomitant]

REACTIONS (10)
  - Feeling abnormal [Recovered/Resolved]
  - Injection site pain [Recovered/Resolved]
  - Injection site haemorrhage [Recovered/Resolved]
  - Injection site nodule [Unknown]
  - Abdominal pain upper [Recovered/Resolved]
  - Weight decreased [Not Recovered/Not Resolved]
  - Drug ineffective [Not Recovered/Not Resolved]
  - Inappropriate schedule of drug administration [Recovered/Resolved]
  - Off label use [Not Recovered/Not Resolved]
  - Injection site bruising [Unknown]
